FAERS Safety Report 9606353 (Version 2)
Quarter: 2013Q4

REPORT INFORMATION
  Report Type: Spontaneous
  Country: US (occurrence: US)
  Receive Date: 20131008
  Receipt Date: 20131008
  Transmission Date: 20140711
  Serious: No
  Sender: FDA-Public Use
  Company Number: US-AMGEN-USASP2013048289

PATIENT
  Age: 93 Year
  Sex: Female
  Weight: 47.62 kg

DRUGS (5)
  1. PROLIA [Suspect]
     Indication: OSTEOPOROSIS
     Dosage: 60 MG, Q6MO
     Route: 058
     Dates: start: 20121220, end: 20130618
  2. OMEPRAZOLE [Concomitant]
     Indication: GASTROOESOPHAGEAL REFLUX DISEASE
     Dosage: 20 MG, QD
     Route: 048
  3. VALSARTAN + HIDROCLOROTIAZIDA [Concomitant]
     Indication: HYPERTENSION
     Dosage: 160 MG, QD
     Route: 048
  4. ASA [Concomitant]
     Indication: PLATELET DISORDER
     Dosage: 81 MG, QD
     Route: 048
  5. CALCIUM D                          /00944201/ [Concomitant]
     Indication: HYPOCALCAEMIA
     Dosage: UNK UNK, QD
     Route: 048

REACTIONS (2)
  - Osteoporosis [Unknown]
  - Bone density decreased [Not Recovered/Not Resolved]
